FAERS Safety Report 13652805 (Version 1)
Quarter: 2017Q2

REPORT INFORMATION
  Report Type: Report from Study
  Country: GB (occurrence: GB)
  Receive Date: 20170614
  Receipt Date: 20170614
  Transmission Date: 20170830
  Serious: Yes (Hospitalization, Other)
  Sender: FDA-Public Use
  Company Number: GB-BAYER-2017-109523

PATIENT
  Age: 43 Year
  Sex: Female

DRUGS (9)
  1. STATIN [Concomitant]
     Active Substance: UNSPECIFIED INGREDIENT
  2. CITALOPRAM [Concomitant]
     Active Substance: CITALOPRAM HYDROBROMIDE
  3. MIRENA [Suspect]
     Active Substance: LEVONORGESTREL
     Indication: CONTRACEPTION
     Dosage: 20 MCG/24HR, CONT
     Route: 015
     Dates: start: 20160216, end: 20160605
  4. LANSOPRAZOLE. [Concomitant]
     Active Substance: LANSOPRAZOLE
  5. LISINOPRIL. [Concomitant]
     Active Substance: LISINOPRIL
  6. AMITRIPTYLINE [Concomitant]
     Active Substance: AMITRIPTYLINE
  7. CODEINE [Concomitant]
     Active Substance: CODEINE
  8. INSULIN [Concomitant]
     Active Substance: INSULIN NOS
  9. CREON [Concomitant]
     Active Substance: PANCRELIPASE AMYLASE\PANCRELIPASE LIPASE\PANCRELIPASE PROTEASE

REACTIONS (6)
  - Pelvic inflammatory disease [Unknown]
  - Benign ovarian tumour [Unknown]
  - Bacteroides test positive [None]
  - Abdominal pain [Unknown]
  - Tubo-ovarian abscess [Unknown]
  - Alcoholic pancreatitis [Unknown]

NARRATIVE: CASE EVENT DATE: 20160309
